FAERS Safety Report 6168213-9 (Version None)
Quarter: 2009Q2

REPORT INFORMATION
  Report Type: 
  Country: None (occurrence: None)
  Receive Date: 20090423
  Receipt Date: 20090415
  Transmission Date: 20091009
  Serious: Yes (Other)
  Sender: FDA-Public Use
  Company Number: GXKR2009IN04659

PATIENT
  Age: 11 Year
  Sex: Male

DRUGS (1)
  1. CEFADROXIL (NGX) (CEFADROXIL) UNKNOWN [Suspect]
     Indication: FURUNCLE

REACTIONS (2)
  - ACUTE GENERALISED EXANTHEMATOUS PUSTULOSIS [None]
  - NEUTROPHILIA [None]
